FAERS Safety Report 25121877 (Version 1)
Quarter: 2025Q1

REPORT INFORMATION
  Report Type: Spontaneous
  Country: CN (occurrence: CN)
  Receive Date: 20250326
  Receipt Date: 20250326
  Transmission Date: 20250409
  Serious: Yes (Life-Threatening)
  Sender: GRIFOLS
  Company Number: CN-IGSA-BIG0033788

PATIENT
  Age: 67 Year
  Sex: Male

DRUGS (2)
  1. ALBUTEIN [Suspect]
     Active Substance: ALBUMIN HUMAN
     Indication: Hepatic lesion
     Route: 042
     Dates: start: 20250227, end: 20250227
  2. ALBUTEIN [Suspect]
     Active Substance: ALBUMIN HUMAN
     Indication: Product use in unapproved indication

REACTIONS (3)
  - Anaphylactic shock [Recovering/Resolving]
  - Blood pressure decreased [Recovering/Resolving]
  - Heart rate increased [Recovering/Resolving]

NARRATIVE: CASE EVENT DATE: 20250227
